APPROVED DRUG PRODUCT: LEVONORGESTREL AND ETHINYL ESTRADIOL
Active Ingredient: ETHINYL ESTRADIOL; LEVONORGESTREL
Strength: 0.02MG;0.1MG
Dosage Form/Route: TABLET;ORAL-28
Application: A091425 | Product #001 | TE Code: AB1
Applicant: LUPIN LTD
Approved: Jan 18, 2013 | RLD: No | RS: No | Type: RX